FAERS Safety Report 14200314 (Version 1)
Quarter: 2017Q4

REPORT INFORMATION
  Report Type: Spontaneous
  Country: DE (occurrence: DE)
  Receive Date: 20171117
  Receipt Date: 20171117
  Transmission Date: 20180321
  Serious: Yes (Other)
  Sender: FDA-Public Use
  Company Number: DE-MYLANLABS-2017M1072449

PATIENT
  Age: 79 Year
  Sex: Female

DRUGS (3)
  1. PREDNISOLONE. [Suspect]
     Active Substance: PREDNISOLONE
     Indication: RHEUMATOID ARTHRITIS
     Dosage: 5MG/DAY
     Route: 048
  2. LEFLUNOMIDE. [Suspect]
     Active Substance: LEFLUNOMIDE
     Indication: RHEUMATOID ARTHRITIS
     Dosage: 20MG/DAY
     Route: 048
  3. INTERFERON ALFA 2B [Suspect]
     Active Substance: INTERFERON ALFA-2B
     Indication: MALIGNANT NEOPLASM OF CONJUNCTIVA
     Dosage: 4 TIMES/DAY OVER 12 WEEKS
     Route: 065

REACTIONS (5)
  - Ulcerative keratitis [Recovering/Resolving]
  - Malignant neoplasm of conjunctiva [Recovering/Resolving]
  - Metastases to lymph nodes [Unknown]
  - Corneal scar [Recovering/Resolving]
  - Hypopyon [Unknown]
